FAERS Safety Report 14891765 (Version 2)
Quarter: 2018Q2

REPORT INFORMATION
  Report Type: Spontaneous
  Country: US (occurrence: US)
  Receive Date: 20180514
  Receipt Date: 20180608
  Transmission Date: 20180711
  Serious: No
  Sender: FDA-Public Use
  Company Number: US-ASTRAZENECA-2018SE63131

PATIENT
  Age: 23123 Day
  Sex: Male
  Weight: 112.5 kg

DRUGS (2)
  1. BYDUREON BCISE [Suspect]
     Active Substance: EXENATIDE
     Indication: BLOOD GLUCOSE INCREASED
     Route: 058
     Dates: start: 201802
  2. INSULIN [Concomitant]
     Active Substance: INSULIN NOS
     Indication: BLOOD GLUCOSE INCREASED
     Dosage: 200 UNITS DAILY
     Route: 058

REACTIONS (6)
  - Bradyphrenia [Unknown]
  - Wrong technique in product usage process [Unknown]
  - Device leakage [Unknown]
  - Injection site haemorrhage [Recovered/Resolved]
  - Device issue [Unknown]
  - Diabetes mellitus inadequate control [Not Recovered/Not Resolved]

NARRATIVE: CASE EVENT DATE: 20180501
